FAERS Safety Report 13039650 (Version 1)
Quarter: 2016Q4

REPORT INFORMATION
  Report Type: Spontaneous
  Country: US (occurrence: US)
  Receive Date: 20161219
  Receipt Date: 20161219
  Transmission Date: 20170207
  Serious: Yes (Hospitalization, Other)
  Sender: FDA-Public Use
  Company Number: US-ASTELLAS-2016US049714

PATIENT
  Age: 22 Year
  Sex: Female

DRUGS (3)
  1. MICAFUNGIN [Suspect]
     Active Substance: MICAFUNGIN
     Indication: MUCORMYCOSIS
     Dosage: UNK UNK, UNKNOWN FREQ.
     Route: 065
  2. INSULIN [Concomitant]
     Active Substance: INSULIN NOS
     Indication: TYPE 1 DIABETES MELLITUS
     Dosage: UNK UNK, UNKNOWN FREQ.
     Route: 042
  3. AMPHOTERICIN B. [Concomitant]
     Active Substance: AMPHOTERICIN B
     Indication: MUCORMYCOSIS
     Dosage: UNK UNK, UNKNOWN FREQ.
     Route: 065

REACTIONS (6)
  - Brain abscess [Unknown]
  - Hemiplegia [Unknown]
  - Cerebral infarction [Unknown]
  - Cavernous sinus thrombosis [Unknown]
  - Haemorrhagic infarction [Unknown]
  - Nasal necrosis [Unknown]
